FAERS Safety Report 10479927 (Version 1)
Quarter: 2014Q3

REPORT INFORMATION
  Report Type: Spontaneous
  Country: GB (occurrence: GB)
  Receive Date: 20140929
  Receipt Date: 20140929
  Transmission Date: 20150326
  Serious: Yes (Other)
  Sender: FDA-Public Use
  Company Number: GB-AMGEN-GBRSP2014073164

PATIENT
  Sex: Female
  Weight: 99 kg

DRUGS (1)
  1. PROLIA [Suspect]
     Active Substance: DENOSUMAB
     Indication: OSTEOPOROSIS POSTMENOPAUSAL
     Dosage: UNK
     Route: 065

REACTIONS (6)
  - Metastatic neoplasm [Unknown]
  - Dental operation [Unknown]
  - Back pain [Unknown]
  - Groin pain [Unknown]
  - Bone density decreased [Unknown]
  - Calcium deficiency [Unknown]
